FAERS Safety Report 25372550 (Version 2)
Quarter: 2025Q3

REPORT INFORMATION
  Report Type: Report from Study
  Country: GB (occurrence: GB)
  Receive Date: 20250529
  Receipt Date: 20250715
  Transmission Date: 20251021
  Serious: Yes (Other)
  Sender: TAKEDA
  Company Number: GB-TAKEDA-2025TUS048694

PATIENT
  Age: 8 Year
  Sex: Female

DRUGS (7)
  1. TEDUGLUTIDE [Suspect]
     Active Substance: TEDUGLUTIDE
     Indication: Short-bowel syndrome
     Dosage: 0.75 MILLIGRAM, QD
     Dates: start: 20230625, end: 20230830
  2. TEDUGLUTIDE [Suspect]
     Active Substance: TEDUGLUTIDE
     Dosage: 0.85 MILLIGRAM, QD
     Dates: start: 20230625, end: 20241112
  3. TEDUGLUTIDE [Suspect]
     Active Substance: TEDUGLUTIDE
     Dosage: 0.95 MILLIGRAM, QD
     Dates: start: 20241112
  4. TEDUGLUTIDE [Suspect]
     Active Substance: TEDUGLUTIDE
  5. RIFAXIMIN [Concomitant]
     Active Substance: RIFAXIMIN
     Indication: Gastrointestinal microorganism overgrowth
     Dosage: 100 MILLIGRAM, TID
     Dates: start: 20240223
  6. CIPROFLOXACIN [Concomitant]
     Active Substance: CIPROFLOXACIN
     Indication: Gastrointestinal microorganism overgrowth
     Dosage: 7.3 MILLILITER, BID
     Dates: start: 20231228
  7. FERROUS FUMARATE [Concomitant]
     Active Substance: FERROUS FUMARATE
     Indication: Blood iron decreased
     Dosage: 2.5 MILLILITER, TID
     Dates: start: 20210325

REACTIONS (1)
  - Syncope [Recovered/Resolved]

NARRATIVE: CASE EVENT DATE: 20241024
